FAERS Safety Report 19380138 (Version 1)
Quarter: 2021Q2

REPORT INFORMATION
  Report Type: Spontaneous
  Country: US (occurrence: US)
  Receive Date: 20210607
  Receipt Date: 20210607
  Transmission Date: 20210717
  Serious: Yes (Other)
  Sender: FDA-Public Use
  Company Number: US-AUROBINDO-AUR-APL-2021-022446

PATIENT
  Age: 73 Year
  Sex: Male

DRUGS (2)
  1. SODIUM NITROPRUSSIDE (SINGLE DOSE VIAL) [Suspect]
     Active Substance: SODIUM NITROPRUSSIDE
     Indication: RESPIRATORY FAILURE
     Dosage: UNK
     Route: 065
  2. SODIUM NITROPRUSSIDE (SINGLE DOSE VIAL) [Suspect]
     Active Substance: SODIUM NITROPRUSSIDE
     Indication: CARDIOGENIC SHOCK

REACTIONS (2)
  - Drug ineffective [Unknown]
  - Organ failure [Unknown]
